FAERS Safety Report 10252148 (Version 1)
Quarter: 2014Q2

REPORT INFORMATION
  Report Type: Spontaneous
  Country: US (occurrence: US)
  Receive Date: 20140623
  Receipt Date: 20140623
  Transmission Date: 20141212
  Serious: No
  Sender: FDA-Public Use
  Company Number: US-JNJFOC-20140518833

PATIENT
  Age: 26 Year
  Sex: Female

DRUGS (5)
  1. INVEGA SUSTENNA [Suspect]
     Indication: SCHIZOAFFECTIVE DISORDER
     Route: 030
     Dates: start: 201402
  2. DEPAKOTE [Concomitant]
     Route: 065
     Dates: end: 201402
  3. GEODON [Concomitant]
     Route: 065
     Dates: end: 201402
  4. WELLBUTRIN [Concomitant]
     Route: 065
     Dates: end: 201402
  5. SEROQUEL [Concomitant]
     Route: 065
     Dates: end: 201402

REACTIONS (2)
  - Injection site swelling [Unknown]
  - Drug dose omission [Unknown]
